FAERS Safety Report 5417069-8 (Version None)
Quarter: 2007Q3

REPORT INFORMATION
  Report Type: 
  Country: None (occurrence: None)
  Receive Date: 20070718
  Receipt Date: 20060602
  Transmission Date: 20080115
  Serious: Yes (Hospitalization, Other)
  Sender: FDA-Public Use
  Company Number: 2005126035

PATIENT
  Age: 47 Year
  Sex: Male

DRUGS (11)
  1. CELEBREX [Suspect]
     Indication: ILL-DEFINED DISORDER
     Dates: start: 19990101, end: 20040601
  2. VIOXX [Suspect]
     Indication: ILL-DEFINED DISORDER
     Dates: start: 20040601
  3. CLONIDINE [Concomitant]
  4. ZOLOFT [Concomitant]
  5. PREDNISONE TAB [Concomitant]
  6. TOPROL-XL [Concomitant]
  7. RENAGEL [Concomitant]
  8. DILTIAZEM [Concomitant]
  9. COZAAR [Concomitant]
  10. PREVACID [Concomitant]
  11. COMBIVENT [Concomitant]

REACTIONS (4)
  - CEREBROVASCULAR ACCIDENT [None]
  - MYOCARDIAL INFARCTION [None]
  - RENAL FAILURE [None]
  - SEPSIS [None]
